FAERS Safety Report 14299027 (Version 1)
Quarter: 2017Q4

REPORT INFORMATION
  Report Type: Spontaneous
  Country: FR (occurrence: FR)
  Receive Date: 20171218
  Receipt Date: 20171218
  Transmission Date: 20180321
  Serious: Yes (Other)
  Sender: FDA-Public Use
  Company Number: FR-ASTRAZENECA-2017SF28230

PATIENT
  Age: 70 Year
  Sex: Female
  Weight: 61 kg

DRUGS (1)
  1. FASLODEX [Suspect]
     Active Substance: FULVESTRANT
     Indication: BREAST CANCER
     Route: 030
     Dates: start: 20161003

REACTIONS (1)
  - Thrombophlebitis [Recovering/Resolving]

NARRATIVE: CASE EVENT DATE: 201708
